FAERS Safety Report 7223098-4 (Version None)
Quarter: 2011Q1

REPORT INFORMATION
  Report Type: 
  Country: None (occurrence: None)
  Receive Date: 20110112
  Receipt Date: 20110106
  Transmission Date: 20110831
  Serious: Yes (Hospitalization, Other)
  Sender: FDA-Public Use
  Company Number: FR-BRISTOL-MYERS SQUIBB COMPANY-15477441

PATIENT
  Age: 72 Year
  Sex: Female

DRUGS (2)
  1. COUMADIN [Suspect]
     Dosage: 2002 TO 12-APR-2010, STILL UNDER COUMADINE ON 20-DEC-2010
     Route: 048
     Dates: start: 20020101
  2. CHINESE HERBS [Concomitant]

REACTIONS (6)
  - SUBDURAL HAEMATOMA [None]
  - HEAD INJURY [None]
  - HEADACHE [None]
  - SOMNOLENCE [None]
  - DISTURBANCE IN ATTENTION [None]
  - TINNITUS [None]
